FAERS Safety Report 14885938 (Version 2)
Quarter: 2019Q1

REPORT INFORMATION
  Report Type: Spontaneous
  Country: US (occurrence: US)
  Receive Date: 20180512
  Receipt Date: 20190214
  Transmission Date: 20190417
  Serious: Yes (Other)
  Sender: FDA-Public Use
  Company Number: US-ASTRAZENECA-2018SE61389

PATIENT
  Sex: Female
  Weight: 73 kg

DRUGS (7)
  1. NEXIUM [Suspect]
     Active Substance: ESOMEPRAZOLE MAGNESIUM
     Route: 048
     Dates: start: 2004, end: 2011
  2. ASPIRIN. [Concomitant]
     Active Substance: ASPIRIN
     Route: 065
  3. LISINOPRIL. [Concomitant]
     Active Substance: LISINOPRIL
     Route: 065
  4. AMLODIPINE [Concomitant]
     Active Substance: AMLODIPINE BESYLATE
     Route: 065
  5. RENA-VITE [Concomitant]
     Active Substance: ASCORBIC ACID\BIOTIN\CALCIUM PANTOTHENATE\CYANOCOBALAMIN\FOLIC ACID\NIACINAMIDE\PYRIDOXINE HYDROCHLORIDE\RIBOFLAVIN\THIAMINE MONONITRATE
     Route: 065
  6. RENVELA [Concomitant]
     Active Substance: SEVELAMER CARBONATE
     Route: 048
  7. CARVEDILOL. [Concomitant]
     Active Substance: CARVEDILOL
     Route: 065

REACTIONS (3)
  - Chronic kidney disease [Unknown]
  - End stage renal disease [Unknown]
  - Renal failure [Unknown]
